FAERS Safety Report 8187271-3 (Version None)
Quarter: 2012Q1

REPORT INFORMATION
  Report Type: 
  Country: None (occurrence: None)
  Receive Date: 20120306
  Receipt Date: 20120227
  Transmission Date: 20120608
  Serious: Yes (Hospitalization)
  Sender: FDA-Public Use
  Company Number: US-BAYER-201032382NA

PATIENT
  Age: 29 Year
  Sex: Female
  Weight: 86.168 kg

DRUGS (5)
  1. MULTI-VITAMINS [Concomitant]
     Dosage: 1 U, QD
     Route: 048
  2. YAZ [Suspect]
     Indication: CONTRACEPTION
     Dosage: UNK
     Route: 048
     Dates: start: 20080801, end: 20081001
  3. CYMBALTA [Concomitant]
     Dosage: 30 MG, QD
  4. INDOCIN [Concomitant]
     Indication: PAIN
  5. VICODIN [Concomitant]
     Indication: PAIN
     Dosage: UNK
     Dates: start: 20080901

REACTIONS (1)
  - PULMONARY EMBOLISM [None]
